FAERS Safety Report 6475219-9 (Version None)
Quarter: 2009Q4

REPORT INFORMATION
  Report Type: 
  Country: None (occurrence: None)
  Receive Date: 20091204
  Receipt Date: 20090505
  Transmission Date: 20100525
  Serious: Yes (Hospitalization, Other)
  Sender: FDA-Public Use
  Company Number: US-ELI_LILLY_AND_COMPANY-US200903004599

PATIENT
  Age: 42 Year
  Sex: Female
  Weight: 127.89 kg

DRUGS (7)
  1. CYMBALTA [Suspect]
     Indication: DEPRESSION
     Dosage: 30 MG, DAILY (1/D)
     Route: 048
     Dates: start: 20090201, end: 20090101
  2. CYMBALTA [Suspect]
     Dosage: 60 MG, DAILY (1/D)
     Route: 048
     Dates: start: 20090101, end: 20090101
  3. ALCOHOL [Concomitant]
  4. TRAZODONE [Concomitant]
     Dosage: 100 MG, EACH EVENING
  5. LEVOTHYROXINE SODIUM [Concomitant]
  6. MULTI-VITAMIN [Concomitant]
  7. VITAMIN B COMPLEX /01753401/ [Concomitant]

REACTIONS (9)
  - ALCOHOL WITHDRAWAL SYNDROME [None]
  - CONVULSION [None]
  - HALLUCINATION [None]
  - HEADACHE [None]
  - HYPOKALAEMIA [None]
  - HYPOTHYROIDISM [None]
  - NAUSEA [None]
  - PHARYNGEAL OEDEMA [None]
  - SWELLING FACE [None]
